FAERS Safety Report 5313337-9 (Version None)
Quarter: 2007Q2

REPORT INFORMATION
  Report Type: 
  Country: None (occurrence: None)
  Receive Date: 20070501
  Receipt Date: 20070423
  Transmission Date: 20071010
  Serious: Yes (Death, Hospitalization, Other)
  Sender: FDA-Public Use
  Company Number: JP-ELI_LILLY_AND_COMPANY-JP200609000383

PATIENT
  Age: 78 Year
  Sex: Male
  Weight: 55 kg

DRUGS (9)
  1. GEMZAR [Suspect]
     Indication: NON-SMALL CELL LUNG CANCER STAGE IV
     Dosage: 1600 MG, OTHER
     Route: 042
     Dates: start: 20060824
  2. ATELEC [Concomitant]
     Indication: HYPERTENSION
     Dosage: 20 MG, DAILY (1/D)
     Route: 048
     Dates: end: 20060830
  3. ADALAT CR /SCH/ [Concomitant]
     Indication: HYPERTENSION
     Dosage: 40 MG, DAILY (1/D)
     Route: 048
     Dates: end: 20060830
  4. DIOVAN /SCH/ [Concomitant]
     Indication: HYPERTENSION
     Dosage: 80 MG, DAILY (1/D)
     Route: 048
     Dates: end: 20060830
  5. LOXONIN [Concomitant]
     Indication: PAIN
     Dosage: 120 MG, DAILY (1/D)
     Route: 048
     Dates: start: 20060820, end: 20060830
  6. MIYA-BM /JPN/ [Concomitant]
     Indication: PROPHYLAXIS AGAINST DIARRHOEA
     Dosage: 3 G, DAILY (1/D)
     Route: 048
     Dates: start: 20060820, end: 20060830
  7. MAGMITT [Concomitant]
     Indication: CONSTIPATION
     Dosage: 990 MG, DAILY (1/D)
     Route: 048
     Dates: start: 20060820, end: 20060830
  8. S.M. [Concomitant]
     Indication: PROPHYLAXIS
     Dosage: 3 G, DAILY (1/D)
     Route: 048
     Dates: start: 20060820, end: 20060830
  9. AVISHOT [Concomitant]
     Indication: BENIGN PROSTATIC HYPERPLASIA
     Dosage: 50 MG, DAILY (1/D)
     Route: 048
     Dates: start: 20060820, end: 20060830

REACTIONS (7)
  - BLOODY DISCHARGE [None]
  - DEATH [None]
  - DECREASED APPETITE [None]
  - DEHYDRATION [None]
  - PNEUMONIA [None]
  - RENAL IMPAIRMENT [None]
  - UPPER GASTROINTESTINAL HAEMORRHAGE [None]
